FAERS Safety Report 4416763-5 (Version None)
Quarter: 2004Q3

REPORT INFORMATION
  Report Type: 
  Country: None (occurrence: None)
  Receive Date: 20040802
  Receipt Date: 20040723
  Transmission Date: 20050211
  Serious: Yes (Hospitalization)
  Sender: FDA-Public Use
  Company Number: HQWYE401723JUL04

PATIENT
  Age: 62 Year
  Sex: Male

DRUGS (5)
  1. AMIODARONE HCL [Suspect]
     Indication: ATRIAL FIBRILLATION
     Dosage: 200 MG 1X PER 1 DAY ORAL
     Route: 048
     Dates: start: 20030101
  2. AMIODARONE HCL [Suspect]
     Indication: ATRIAL FLUTTER
     Dosage: 200 MG 1X PER 1 DAY ORAL
     Route: 048
     Dates: start: 20030101
  3. COUMADIN [Concomitant]
  4. XANAX [Concomitant]
  5. PREDNISONE [Concomitant]

REACTIONS (4)
  - BLINDNESS UNILATERAL [None]
  - OPTIC ATROPHY [None]
  - PAPILLITIS [None]
  - PSEUDOPAPILLOEDEMA [None]
